FAERS Safety Report 5379743-1 (Version None)
Quarter: 2007Q3

REPORT INFORMATION
  Report Type: 
  Country: None (occurrence: None)
  Receive Date: 20070706
  Receipt Date: 20070628
  Transmission Date: 20080115
  Serious: Yes (Other)
  Sender: FDA-Public Use
  Company Number: PHEH2007US09425

PATIENT
  Sex: Male

DRUGS (2)
  1. MIACALCIN [Suspect]
  2. AZITHROMYCIN [Suspect]

REACTIONS (1)
  - GASTRIC ULCER HAEMORRHAGE [None]
